FAERS Safety Report 18266700 (Version 4)
Quarter: 2021Q2

REPORT INFORMATION
  Report Type: Report from Study
  Country: FR (occurrence: FR)
  Receive Date: 20200915
  Receipt Date: 20210610
  Transmission Date: 20210717
  Serious: Yes (Hospitalization)
  Sender: FDA-Public Use
  Company Number: NVSC2020FR128212

PATIENT
  Age: 73 Year
  Sex: Male
  Weight: 80 kg

DRUGS (10)
  1. SPECIAFOLDINE [Concomitant]
     Active Substance: FOLIC ACID
     Indication: IRON DEFICIENCY
  2. PDR001 [Suspect]
     Active Substance: SPARTALIZUMAB
     Indication: METASTATIC MALIGNANT MELANOMA
     Dosage: 400 MG, Q4W
     Route: 042
     Dates: start: 20191220
  3. SPECIAFOLDINE [Concomitant]
     Active Substance: FOLIC ACID
     Indication: VITAMIN B COMPLEX DEFICIENCY
     Dosage: UNK
     Route: 065
     Dates: start: 20200213
  4. SIMVASTATINE [Concomitant]
     Active Substance: SIMVASTATIN
     Indication: DYSLIPIDAEMIA
     Dosage: UNK
     Route: 065
     Dates: start: 20130101
  5. RIBOCICLIB. [Suspect]
     Active Substance: RIBOCICLIB
     Indication: METASTATIC MALIGNANT MELANOMA
     Dosage: 200 MG, QD
     Route: 048
     Dates: start: 20191220
  6. DESLORATADINE. [Concomitant]
     Active Substance: DESLORATADINE
     Indication: RHINITIS
     Dosage: UNK
     Route: 065
     Dates: start: 20100101
  7. FLAMMAZINE [Concomitant]
     Active Substance: SILVER SULFADIAZINE
     Indication: TELANGIECTASIA
     Dosage: UNK
     Route: 065
     Dates: start: 20200122
  8. SOLU?MEDROL [Concomitant]
     Active Substance: METHYLPREDNISOLONE SODIUM SUCCINATE
     Indication: MYOSITIS
     Dosage: UNK
     Route: 065
     Dates: start: 20200508, end: 20200801
  9. APIXABAN [Concomitant]
     Active Substance: APIXABAN
     Indication: BLOOD PRESSURE INCREASED
     Dosage: UNK
     Route: 065
     Dates: start: 20130101
  10. AMLODIPINE [Concomitant]
     Active Substance: AMLODIPINE BESYLATE
     Indication: BLOOD PRESSURE INCREASED
     Dosage: UNK
     Route: 065
     Dates: start: 20130101

REACTIONS (1)
  - Hepatitis acute [Not Recovered/Not Resolved]

NARRATIVE: CASE EVENT DATE: 20200507
